FAERS Safety Report 10728360 (Version 2)
Quarter: 2015Q1

REPORT INFORMATION
  Report Type: Spontaneous
  Country: US (occurrence: US)
  Receive Date: 20150122
  Receipt Date: 20150128
  Transmission Date: 20150721
  Serious: Yes (Other)
  Sender: FDA-Public Use
  Company Number: US-JNJFOC-20141209702

PATIENT
  Age: 81 Year
  Sex: Female
  Weight: 51.26 kg

DRUGS (4)
  1. CAMPTOSAR [Concomitant]
     Active Substance: IRINOTECAN HYDROCHLORIDE
     Indication: CHEMOTHERAPY
     Route: 065
     Dates: start: 20141113
  2. TYLENOL EXTRA STRENGTH [Suspect]
     Active Substance: ACETAMINOPHEN
     Route: 048
  3. TYLENOL EXTRA STRENGTH [Suspect]
     Active Substance: ACETAMINOPHEN
     Indication: BLADDER DISCOMFORT
     Dosage: TWO 500 MG TABLETS AT NIGHT
     Route: 048
     Dates: start: 20141128, end: 20141209
  4. ERBITUX [Concomitant]
     Active Substance: CETUXIMAB
     Indication: CHEMOTHERAPY
     Route: 065
     Dates: start: 20141113

REACTIONS (4)
  - Product use issue [Unknown]
  - Erythema [Recovered/Resolved]
  - Urticaria [Recovered/Resolved]
  - Pruritus [Recovered/Resolved]

NARRATIVE: CASE EVENT DATE: 20141209
